FAERS Safety Report 5875175-8 (Version None)
Quarter: 2008Q3

REPORT INFORMATION
  Report Type: 
  Country: None (occurrence: None)
  Receive Date: 20080909
  Receipt Date: 20080829
  Transmission Date: 20090109
  Serious: Yes (Hospitalization)
  Sender: FDA-Public Use
  Company Number: DE-JNJFOC-20080805927

PATIENT
  Sex: Male
  Weight: 74 kg

DRUGS (5)
  1. REMICADE [Suspect]
  2. REMICADE [Suspect]
     Indication: CROHN'S DISEASE
  3. PANTOZOL [Concomitant]
  4. PANTOZOL [Concomitant]
     Indication: CROHN'S DISEASE
  5. PREDNISOLONE [Concomitant]

REACTIONS (3)
  - CROHN'S DISEASE [None]
  - ILEAL STENOSIS [None]
  - RENAL COLIC [None]
